FAERS Safety Report 12512550 (Version 1)
Quarter: 2016Q2

REPORT INFORMATION
  Report Type: Spontaneous
  Country: US (occurrence: None)
  Receive Date: 20160629
  Receipt Date: 20160629
  Transmission Date: 20160815
  Serious: Yes (Life-Threatening, Hospitalization, Disabling)
  Sender: FDA-Public Use
  Company Number: None

PATIENT
  Age: 48 Year
  Sex: Male
  Weight: 106.6 kg

DRUGS (2)
  1. BENICAR [Suspect]
     Active Substance: OLMESARTAN MEDOXOMIL
  2. BENICAR [Suspect]
     Active Substance: OLMESARTAN MEDOXOMIL
     Indication: HYPERTENSION
     Route: 048
     Dates: start: 20120102, end: 20160531

REACTIONS (9)
  - Renal impairment [None]
  - Gastrointestinal infection [None]
  - Vomiting [None]
  - Dehydration [None]
  - Nausea [None]
  - Weight decreased [None]
  - Hypotension [None]
  - Diarrhoea [None]
  - Hepatic enzyme increased [None]

NARRATIVE: CASE EVENT DATE: 20160515
